FAERS Safety Report 5655918-9 (Version None)
Quarter: 2008Q1

REPORT INFORMATION
  Report Type: 
  Country: None (occurrence: None)
  Receive Date: 20080307
  Receipt Date: 20080226
  Transmission Date: 20080703
  Serious: No
  Sender: FDA-Public Use
  Company Number: US-BOEHRINGER INGELHEIM GMBH, GERMANY-2008-BP-01123BP

PATIENT
  Age: 13 Year
  Sex: Male

DRUGS (1)
  1. CATAPRES-TTS-1 [Suspect]
     Indication: AUTISM
     Route: 061
     Dates: start: 20020101

REACTIONS (1)
  - ABNORMAL BEHAVIOUR [None]
